FAERS Safety Report 19392798 (Version 1)
Quarter: 2021Q2

REPORT INFORMATION
  Report Type: Spontaneous
  Country: US (occurrence: US)
  Receive Date: 20210609
  Receipt Date: 20210609
  Transmission Date: 20210717
  Serious: Yes (Life-Threatening, Other)
  Sender: FDA-Public Use
  Company Number: US-FRESENIUS KABI-FK202105768

PATIENT
  Age: 64 Year
  Sex: Male
  Weight: 121 kg

DRUGS (5)
  1. HEPARIN [Concomitant]
     Active Substance: HEPARIN SODIUM
     Route: 065
     Dates: start: 20210603, end: 20210603
  2. PROTAMINE SULFATE INJECTION, USP [Suspect]
     Active Substance: PROTAMINE SULFATE
     Route: 042
     Dates: start: 20210603, end: 20210603
  3. PROTAMINE SULFATE INJECTION, USP [Suspect]
     Active Substance: PROTAMINE SULFATE
     Indication: PROCOAGULANT THERAPY
     Dosage: TEST DOSE
     Route: 042
     Dates: start: 20210603, end: 20210603
  4. HEPARIN [Concomitant]
     Active Substance: HEPARIN SODIUM
     Indication: ANGIOGRAM PERIPHERAL
     Route: 065
     Dates: start: 20210603, end: 20210603
  5. HEPARIN [Concomitant]
     Active Substance: HEPARIN SODIUM
     Route: 065
     Dates: start: 20210603, end: 20210603

REACTIONS (2)
  - Cardio-respiratory arrest [Recovering/Resolving]
  - Cardio-respiratory distress [Recovering/Resolving]

NARRATIVE: CASE EVENT DATE: 20210603
